FAERS Safety Report 23365128 (Version 1)
Quarter: 2024Q1

REPORT INFORMATION
  Report Type: Spontaneous
  Country: SE (occurrence: SE)
  Receive Date: 20240104
  Receipt Date: 20240104
  Transmission Date: 20240410
  Serious: Yes (Disabling)
  Sender: FDA-Public Use
  Company Number: None

PATIENT
  Age: 82 Year
  Sex: Male

DRUGS (4)
  1. ESOMEPRAZOLE [Suspect]
     Active Substance: ESOMEPRAZOLE
     Indication: Gastrooesophageal reflux disease
     Dates: start: 1995, end: 20200524
  2. XARELTO [Concomitant]
     Active Substance: RIVAROXABAN
     Dosage: 1X1?STRENGTH: 20 MG
     Dates: start: 2010
  3. CANDESARTAN CILEXETIL AND HYDROCHLOROTHIAZIDE [Concomitant]
     Active Substance: CANDESARTAN CILEXETIL\HYDROCHLOROTHIAZIDE
     Dosage: 1X1
  4. METOPROLOL [Concomitant]
     Active Substance: METOPROLOL
     Dosage: 1X1

REACTIONS (7)
  - Muscle atrophy [Not Recovered/Not Resolved]
  - Dyspnoea [Recovering/Resolving]
  - Myalgia [Recovering/Resolving]
  - Photosensitivity reaction [Recovering/Resolving]
  - Muscular weakness [Not Recovered/Not Resolved]
  - Hyperhidrosis [Recovering/Resolving]
  - Polymyalgia rheumatica [Recovering/Resolving]
